FAERS Safety Report 7955433-3 (Version None)
Quarter: 2011Q4

REPORT INFORMATION
  Report Type: 
  Country: None (occurrence: None)
  Receive Date: 20111202
  Receipt Date: 20111118
  Transmission Date: 20120403
  Serious: Yes (Hospitalization)
  Sender: FDA-Public Use
  Company Number: CA-ROCHE-GNE321789

PATIENT
  Sex: Female

DRUGS (14)
  1. LUCENTIS [Suspect]
     Dosage: UNK
     Route: 050
     Dates: start: 20110701
  2. NIFEDIPINE [Concomitant]
  3. ATENOLOL [Concomitant]
  4. PLAVIX [Concomitant]
  5. NITROGLYCERIN [Concomitant]
  6. VITAMIN D [Concomitant]
  7. TRAZODONE HCL [Concomitant]
  8. SENOKOT [Concomitant]
  9. SPIRONOLACTONE [Concomitant]
  10. MICARDIS [Concomitant]
  11. DOXAZOSIN MESYLATE [Concomitant]
  12. LUCENTIS [Suspect]
     Indication: AGE-RELATED MACULAR DEGENERATION
     Dosage: UNK
     Route: 050
     Dates: start: 20090101
  13. LUCENTIS [Suspect]
     Dosage: UNK
     Route: 050
     Dates: start: 20110519
  14. ATORVASTATIN [Concomitant]

REACTIONS (1)
  - CEREBROVASCULAR ACCIDENT [None]
